FAERS Safety Report 7271158-4 (Version None)
Quarter: 2011Q1

REPORT INFORMATION
  Report Type: 
  Country: None (occurrence: None)
  Receive Date: 20110202
  Receipt Date: 20110121
  Transmission Date: 20110831
  Serious: Yes (Hospitalization)
  Sender: FDA-Public Use
  Company Number: CA-GENENTECH-312952

PATIENT
  Sex: Female

DRUGS (4)
  1. VINCRISTINE [Suspect]
     Indication: NON-HODGKIN'S LYMPHOMA
     Dosage: UNK
     Route: 042
     Dates: start: 20110111
  2. PREDNISONE [Concomitant]
     Indication: NON-HODGKIN'S LYMPHOMA
     Dosage: UNK
     Dates: start: 20110111
  3. RITUXAN [Suspect]
     Indication: NON-HODGKIN'S LYMPHOMA
     Dosage: UNK
     Route: 042
     Dates: start: 20110110
  4. CYCLOPHOSPHAMIDE [Concomitant]
     Indication: NON-HODGKIN'S LYMPHOMA
     Dosage: UNK
     Dates: start: 20110111

REACTIONS (3)
  - ERYTHEMA [None]
  - CHRONIC FATIGUE SYNDROME [None]
  - TROPONIN INCREASED [None]
